FAERS Safety Report 4641635-0 (Version None)
Quarter: 2005Q2

REPORT INFORMATION
  Report Type: 
  Country: None (occurrence: None)
  Receive Date: 20050420
  Receipt Date: 20050107
  Transmission Date: 20051028
  Serious: Yes (Hospitalization)
  Sender: FDA-Public Use
  Company Number: WAES 0412CHN00021

PATIENT
  Age: 74 Year
  Sex: Male

DRUGS (8)
  1. COZAAR [Suspect]
     Indication: MYOCARDIAL ISCHAEMIA
     Dosage: PO
     Route: 048
     Dates: start: 20030403, end: 20030505
  2. ALLOPURINOL [Concomitant]
  3. ASPIRIN [Concomitant]
  4. BUMETANIDE [Concomitant]
  5. FUROSEMIDE [Concomitant]
  6. ISOSORBIDE DINITRATE [Concomitant]
  7. METOPROLOL TARTRATE [Concomitant]
  8. PIPERAZINE [Concomitant]

REACTIONS (3)
  - DERMATITIS EXFOLIATIVE [None]
  - HYPOTENSION [None]
  - LUNG INFECTION [None]
